FAERS Safety Report 5141100-0 (Version None)
Quarter: 2006Q4

REPORT INFORMATION
  Report Type: 
  Country: None (occurrence: None)
  Receive Date: 20061101
  Receipt Date: 20061018
  Transmission Date: 20070319
  Serious: Yes (Hospitalization)
  Sender: FDA-Public Use
  Company Number: ES-ELI_LILLY_AND_COMPANY-ES200610003431

PATIENT
  Age: 70 Year
  Sex: Male

DRUGS (5)
  1. ZYPREXA [Suspect]
     Indication: REACTIVE PSYCHOSIS
     Dosage: 5 MG, UNK
  2. ZYPREXA [Suspect]
     Dosage: 5 MG, UNK
  3. DEPRAX [Concomitant]
  4. CICLOFALINA [Concomitant]
  5. TRANXILIUM                              /GFR/ [Concomitant]

REACTIONS (1)
  - PULMONARY EMBOLISM [None]
